FAERS Safety Report 14840897 (Version 1)
Quarter: 2018Q2

REPORT INFORMATION
  Report Type: Spontaneous
  Country: US (occurrence: US)
  Receive Date: 20180503
  Receipt Date: 20180503
  Transmission Date: 20180711
  Serious: No
  Sender: FDA-Public Use
  Company Number: US-PFIZER INC-2018179411

PATIENT

DRUGS (1)
  1. TOFACITINIB [Suspect]
     Active Substance: TOFACITINIB
     Indication: DERMATITIS ATOPIC
     Dosage: UNK

REACTIONS (3)
  - Product use in unapproved indication [Unknown]
  - Psoriasis [Unknown]
  - Condition aggravated [Unknown]
